FAERS Safety Report 7203682-4 (Version None)
Quarter: 2010Q4

REPORT INFORMATION
  Report Type: 
  Country: None (occurrence: None)
  Receive Date: 20101220
  Receipt Date: 20101210
  Transmission Date: 20110411
  Serious: Yes (Death, Hospitalization, Other)
  Sender: FDA-Public Use
  Company Number: 110300

PATIENT
  Age: 30 Year
  Sex: Female

DRUGS (1)
  1. LORAZEPAM [Suspect]

REACTIONS (4)
  - CARDIO-RESPIRATORY ARREST [None]
  - MEDICATION ERROR [None]
  - OVERDOSE [None]
  - SUICIDE ATTEMPT [None]
